FAERS Safety Report 25918871 (Version 3)
Quarter: 2025Q4

REPORT INFORMATION
  Report Type: Spontaneous
  Country: US (occurrence: US)
  Receive Date: 20251014
  Receipt Date: 20251119
  Transmission Date: 20260117
  Serious: No
  Sender: GILEAD
  Company Number: US-GILEAD-2025-0732011

PATIENT
  Age: 57 Year
  Sex: Male
  Weight: 67.574 kg

DRUGS (2)
  1. YEZTUGO [Suspect]
     Active Substance: LENACAPAVIR SODIUM
     Indication: Product used for unknown indication
     Dosage: 600 MG
     Route: 048
     Dates: start: 20251007, end: 20251008
  2. YEZTUGO [Suspect]
     Active Substance: LENACAPAVIR SODIUM
     Indication: Product used for unknown indication
     Dosage: 3 ML
     Route: 058
     Dates: start: 20251007, end: 20251007

REACTIONS (1)
  - Injection site discharge [Recovered/Resolved]

NARRATIVE: CASE EVENT DATE: 20251007
